FAERS Safety Report 4758014-8 (Version None)
Quarter: 2005Q3

REPORT INFORMATION
  Report Type: 
  Country: None (occurrence: None)
  Receive Date: 20050826
  Receipt Date: 20050511
  Transmission Date: 20060218
  Serious: No
  Sender: FDA-Public Use
  Company Number: WAES 0504USA03878

PATIENT
  Age: 57 Year
  Sex: Female
  Weight: 75.7507 kg

DRUGS (7)
  1. ZETIA [Suspect]
     Indication: BLOOD CHOLESTEROL INCREASED
     Dosage: 10 MG/DAILY/PO
     Route: 048
     Dates: start: 20040201, end: 20040501
  2. ZETIA [Suspect]
     Indication: BLOOD CHOLESTEROL INCREASED
     Dosage: 10 MG/DAILY/PO
     Route: 048
     Dates: start: 20041201
  3. CITRICAL [Concomitant]
  4. CALCIUM GLUCONATE [Concomitant]
  5. HERBS [Concomitant]
  6. UBIDECARENONE [Concomitant]
  7. VITAMINS [Concomitant]

REACTIONS (3)
  - ALANINE AMINOTRANSFERASE INCREASED [None]
  - ASPARTATE AMINOTRANSFERASE INCREASED [None]
  - HEPATIC ENZYME INCREASED [None]
